FAERS Safety Report 4816082-9 (Version None)
Quarter: 2005Q4

REPORT INFORMATION
  Report Type: 
  Country: None (occurrence: None)
  Receive Date: 20051026
  Receipt Date: 20051011
  Transmission Date: 20060501
  Serious: Yes (Death)
  Sender: FDA-Public Use
  Company Number: 051017-0001008

PATIENT
  Age: 27 Year

DRUGS (3)
  1. METHAMPHETAMINE HCL [Suspect]
     Dosage: PO
     Route: 048
  2. DIAZEPAM [Suspect]
     Dosage: PO
     Route: 048
  3. ETHANOL (ETHANOL) [Suspect]
     Dosage: PO
     Route: 048

REACTIONS (1)
  - DEATH [None]
